FAERS Safety Report 19096280 (Version 2)
Quarter: 2021Q2

REPORT INFORMATION
  Report Type: Spontaneous
  Country: JP (occurrence: JP)
  Receive Date: 20210406
  Receipt Date: 20210521
  Transmission Date: 20210717
  Serious: Yes (Hospitalization, Other)
  Sender: FDA-Public Use
  Company Number: JP-PFIZER INC-2021339203

PATIENT
  Age: 76 Year
  Sex: Female
  Weight: 50 kg

DRUGS (1)
  1. RHEUMATREX [Suspect]
     Active Substance: METHOTREXATE SODIUM
     Indication: RHEUMATOID ARTHRITIS
     Dosage: 2 MG, 1X/DAY
     Route: 048
     Dates: start: 20200612, end: 20200612

REACTIONS (5)
  - Anaphylactic shock [Recovered/Resolved]
  - Pruritus [Recovered/Resolved]
  - Dyspnoea [Recovered/Resolved]
  - Lip swelling [Recovered/Resolved]
  - Altered state of consciousness [Recovered/Resolved]

NARRATIVE: CASE EVENT DATE: 20200612
